FAERS Safety Report 9995411 (Version 1)
Quarter: 2014Q1

REPORT INFORMATION
  Report Type: Spontaneous
  Country: US (occurrence: None)
  Receive Date: 20140225
  Receipt Date: 20140225
  Transmission Date: 20141002
  Serious: Yes (Other)
  Sender: FDA-Public Use
  Company Number: 2013-180

PATIENT
  Age: 66 Year
  Sex: Female

DRUGS (3)
  1. PRIALT [Suspect]
     Indication: COMPLEX REGIONAL PAIN SYNDROME
     Dosage: UNK MCG, ONCE / HOUR, INTRATHECAL
     Dates: start: 201212
  2. HYDROMORPHONE HCL [Suspect]
     Indication: COMPLEX REGIONAL PAIN SYNDROME
     Route: 037
     Dates: start: 201212
  3. CLONIDINE [Suspect]
     Indication: COMPLEX REGIONAL PAIN SYNDROME
     Dosage: UNK, ONCE/HOUR, INTRATHECAL
     Route: 037

REACTIONS (5)
  - Hallucination [None]
  - Confusional state [None]
  - Insomnia [None]
  - Pain in extremity [None]
  - Sedation [None]
